FAERS Safety Report 8580413-7 (Version None)
Quarter: 2012Q3

REPORT INFORMATION
  Report Type: 
  Country: None (occurrence: None)
  Receive Date: 20120808
  Receipt Date: 20120801
  Transmission Date: 20120928
  Serious: Yes (Other)
  Sender: FDA-Public Use
  Company Number: SE-PFIZER INC-2008080735

PATIENT
  Age: 6 Year
  Sex: Female

DRUGS (3)
  1. TOLTERODINE TARTRATE [Suspect]
     Indication: ENURESIS
  2. TOLTERODINE TARTRATE [Suspect]
     Indication: POLYURIA
  3. TOLTERODINE TARTRATE [Suspect]
     Indication: URINARY INCONTINENCE
     Dosage: 1 MG, UNK
     Dates: start: 20070930, end: 20071010

REACTIONS (1)
  - STRABISMUS [None]
